FAERS Safety Report 7297101-X (Version None)
Quarter: 2011Q1

REPORT INFORMATION
  Report Type: 
  Country: None (occurrence: None)
  Receive Date: 20110216
  Receipt Date: 20110213
  Transmission Date: 20110831
  Serious: Yes (Other)
  Sender: FDA-Public Use
  Company Number: US-PFIZER INC-2011031888

PATIENT
  Sex: Female
  Weight: 58.957 kg

DRUGS (2)
  1. ADVIL [Suspect]
     Indication: HEADACHE
  2. ADVIL [Suspect]
     Indication: DYSMENORRHOEA
     Dosage: 400 MG, AS NEEDED
     Route: 048

REACTIONS (3)
  - NAUSEA [None]
  - PRURITUS [None]
  - URTICARIA [None]
